FAERS Safety Report 7458082-9 (Version None)
Quarter: 2011Q2

REPORT INFORMATION
  Report Type: 
  Country: None (occurrence: None)
  Receive Date: 20110504
  Receipt Date: 20110225
  Transmission Date: 20111010
  Serious: Yes (Hospitalization)
  Sender: FDA-Public Use
  Company Number: US-SANOFI-AVENTIS-2011SA013075

PATIENT

DRUGS (1)
  1. APIDRA [Suspect]
     Route: 058

REACTIONS (1)
  - DERMATITIS ALLERGIC [None]
